FAERS Safety Report 23962384 (Version 1)
Quarter: 2024Q2

REPORT INFORMATION
  Report Type: Spontaneous
  Country: US (occurrence: None)
  Receive Date: 20240610
  Receipt Date: 20240610
  Transmission Date: 20240716
  Serious: No
  Sender: FDA-Public Use
  Company Number: None

PATIENT
  Age: 63 Year
  Sex: Female
  Weight: 69.3 kg

DRUGS (2)
  1. GAMMAPLEX [Suspect]
     Active Substance: HUMAN IMMUNOGLOBULIN G
     Indication: Chronic inflammatory demyelinating polyradiculoneuropathy
     Dosage: 50 G GTRAMS EVERY 2 WEEKS INTRAVENOUS?
     Route: 042
     Dates: start: 20240509
  2. GAMMAPLEX [Suspect]
     Active Substance: HUMAN IMMUNOGLOBULIN G
     Indication: Chronic inflammatory demyelinating polyradiculoneuropathy
     Dosage: 50 G GTRAMS EVERY 2 WEEKS INTRAVENOUS?
     Route: 042
     Dates: start: 20240509

REACTIONS (4)
  - Chills [None]
  - Tremor [None]
  - Cough [None]
  - Retching [None]

NARRATIVE: CASE EVENT DATE: 20240509
